FAERS Safety Report 7266424-2 (Version None)
Quarter: 2011Q1

REPORT INFORMATION
  Report Type: 
  Country: None (occurrence: None)
  Receive Date: 20110131
  Receipt Date: 20110112
  Transmission Date: 20110831
  Serious: No
  Sender: FDA-Public Use
  Company Number: US-B.I. PHARMACEUTICALS,INC./RIDGEFIELD-2011-BP-01650BP

PATIENT
  Age: 58 Year
  Sex: Male

DRUGS (2)
  1. ENBREL [Concomitant]
     Indication: PSORIASIS
  2. FLOMAX [Suspect]
     Indication: BENIGN PROSTATIC HYPERPLASIA
     Dosage: 0.4 MG
     Route: 048

REACTIONS (2)
  - DRY MOUTH [None]
  - DRY EYE [None]
